FAERS Safety Report 5805683-7 (Version None)
Quarter: 2008Q3

REPORT INFORMATION
  Report Type: 
  Country: None (occurrence: None)
  Receive Date: 20080710
  Receipt Date: 20080603
  Transmission Date: 20090109
  Serious: No
  Sender: FDA-Public Use
  Company Number: A0730866A

PATIENT
  Age: 47 Year
  Sex: Female

DRUGS (5)
  1. TYKERB [Suspect]
     Indication: BREAST CANCER
     Dosage: 5TAB PER DAY
     Route: 048
     Dates: start: 20080331
  2. XELODA [Suspect]
     Indication: BREAST CANCER
     Dosage: 4TAB TWICE PER DAY
     Route: 048
     Dates: start: 20080531
  3. LIPITOR [Concomitant]
  4. SYNTHROID [Concomitant]
  5. PAXIL [Concomitant]

REACTIONS (1)
  - NAUSEA [None]
